FAERS Safety Report 24406189 (Version 1)
Quarter: 2024Q4

REPORT INFORMATION
  Report Type: Spontaneous
  Country: CN (occurrence: CN)
  Receive Date: 20241007
  Receipt Date: 20241007
  Transmission Date: 20250115
  Serious: Yes (Life-Threatening)
  Sender: BRACCO
  Company Number: CN-BRACCO-2024CN06188

PATIENT
  Age: 42 Year
  Sex: Male

DRUGS (1)
  1. GADOBENATE DIMEGLUMINE [Suspect]
     Active Substance: GADOBENATE DIMEGLUMINE
     Indication: Magnetic resonance imaging hepatobiliary
     Dosage: 14 ML, SINGLE
     Route: 042
     Dates: start: 20240919, end: 20240919

REACTIONS (5)
  - Hypotension [Recovering/Resolving]
  - Hypoaesthesia [Recovering/Resolving]
  - Hypoglycaemia [Recovering/Resolving]
  - Pruritus [Recovering/Resolving]
  - Erythema [Recovering/Resolving]

NARRATIVE: CASE EVENT DATE: 20240919
